FAERS Safety Report 13861322 (Version 3)
Quarter: 2017Q4

REPORT INFORMATION
  Report Type: Spontaneous
  Country: ZA (occurrence: ZA)
  Receive Date: 20170811
  Receipt Date: 20171030
  Transmission Date: 20180320
  Serious: Yes (Death, Hospitalization, Other)
  Sender: FDA-Public Use
  Company Number: ZA-BAYER-2017-149627

PATIENT
  Age: 59 Year
  Sex: Male

DRUGS (1)
  1. STIVARGA [Suspect]
     Active Substance: REGORAFENIB
     Indication: COLORECTAL CANCER
     Dosage: 80 MG, BID
     Route: 048
     Dates: start: 20170308, end: 2017

REACTIONS (5)
  - Colorectal cancer [None]
  - Intestinal obstruction [None]
  - Skin disorder [None]
  - Multiple organ dysfunction syndrome [Fatal]
  - Post procedural complication [Fatal]

NARRATIVE: CASE EVENT DATE: 201706
